FAERS Safety Report 19173127 (Version 5)
Quarter: 2024Q2

REPORT INFORMATION
  Report Type: Report from Study
  Country: JP (occurrence: JP)
  Receive Date: 20210423
  Receipt Date: 20240531
  Transmission Date: 20240716
  Serious: Yes (Other)
  Sender: FDA-Public Use
  Company Number: JP-VIIV HEALTHCARE LIMITED-JP2020JPN060243

PATIENT

DRUGS (15)
  1. ABACAVIR SULFATE\DOLUTEGRAVIR SODIUM\LAMIVUDINE [Suspect]
     Active Substance: ABACAVIR SULFATE\DOLUTEGRAVIR SODIUM\LAMIVUDINE
     Indication: HIV infection
     Dosage: 1 DF, 1D
     Route: 048
     Dates: start: 20190401, end: 20210722
  2. DOVATO [Suspect]
     Active Substance: DOLUTEGRAVIR SODIUM\LAMIVUDINE
     Indication: HIV infection
     Dosage: 1 DF, 1D
     Dates: start: 20210723
  3. PONSTEL [Suspect]
     Active Substance: MEFENAMIC ACID
     Indication: Pharyngitis
     Dosage: UNK
     Dates: start: 20231211, end: 20231220
  4. FLUTICASONE FUROATE [Concomitant]
     Active Substance: FLUTICASONE FUROATE
     Dosage: UNK
     Dates: start: 20210309, end: 20220608
  5. FLUTICASONE FUROATE [Concomitant]
     Active Substance: FLUTICASONE FUROATE
     Dosage: UNK
     Dates: start: 20230313, end: 20230413
  6. FLUTICASONE FUROATE [Concomitant]
     Active Substance: FLUTICASONE FUROATE
     Dosage: UNK
     Dates: start: 20240221
  7. Talion [Concomitant]
     Dosage: UNK
     Dates: end: 20190510
  8. Talion [Concomitant]
     Dosage: UNK
     Dates: start: 20200222, end: 20200521
  9. Talion [Concomitant]
     Dosage: UNK
     Dates: start: 20210309, end: 20220608
  10. PATANOL [Concomitant]
     Active Substance: OLOPATADINE HYDROCHLORIDE
     Dosage: UNK
     Dates: start: 20210309, end: 20220608
  11. ALLEGRA [Concomitant]
     Active Substance: FEXOFENADINE HYDROCHLORIDE
     Dosage: UNK
     Dates: start: 20230313, end: 20230413
  12. EPINASTINE HYDROCHLORIDE [Concomitant]
     Active Substance: EPINASTINE HYDROCHLORIDE
     Dosage: UNK
     Dates: start: 20230313, end: 20230413
  13. EPINASTINE HYDROCHLORIDE [Concomitant]
     Active Substance: EPINASTINE HYDROCHLORIDE
     Dosage: UNK
     Dates: start: 20240221
  14. ALLELOCK [Concomitant]
     Active Substance: OLOPATADINE HYDROCHLORIDE
     Dosage: UNK
     Dates: start: 20231220, end: 20231224
  15. ALLELOCK [Concomitant]
     Active Substance: OLOPATADINE HYDROCHLORIDE
     Dosage: UNK
     Dates: start: 20240221

REACTIONS (8)
  - Stomatitis [Recovering/Resolving]
  - Keratoconus [Not Recovered/Not Resolved]
  - Keratoconus [Recovering/Resolving]
  - Blood triglycerides increased [Recovered/Resolved]
  - Syphilis [Recovering/Resolving]
  - Abdominal pain [Recovering/Resolving]
  - Pharyngitis [Recovering/Resolving]
  - Drug eruption [Recovering/Resolving]

NARRATIVE: CASE EVENT DATE: 20190506
